FAERS Safety Report 4692531-4 (Version None)
Quarter: 2005Q2

REPORT INFORMATION
  Report Type: 
  Country: None (occurrence: None)
  Receive Date: 20050617
  Receipt Date: 20050309
  Transmission Date: 20051028
  Serious: Yes (Disabling, Other)
  Sender: FDA-Public Use
  Company Number: US-MERCK-0503USA02054

PATIENT
  Age: 46 Year
  Sex: Female
  Weight: 73 kg

DRUGS (30)
  1. VIOXX [Suspect]
     Indication: RHEUMATOID ARTHRITIS
     Route: 048
     Dates: start: 19990101, end: 20040101
  2. VIOXX [Suspect]
     Route: 048
     Dates: start: 19990101, end: 19990101
  3. LEVOXYL [Concomitant]
     Route: 065
  4. COUMADIN [Concomitant]
     Route: 065
  5. GLIPIZIDE [Concomitant]
     Route: 065
  6. ZOLOFT [Concomitant]
     Route: 065
  7. ASPIRIN [Concomitant]
     Route: 065
  8. ZOCOR [Concomitant]
     Route: 065
  9. METFORMIN [Concomitant]
     Route: 065
  10. HYDROCODONE BITARTRATE + ACETAMINOPHEN [Concomitant]
     Route: 065
  11. LASIX [Concomitant]
     Route: 065
  12. TRAZODONE HYDROCHLORIDE [Concomitant]
     Route: 065
  13. VICODIN [Concomitant]
     Route: 065
  14. PLAQUENIL [Concomitant]
     Route: 065
  15. POTASSIUM (UNSPECIFIED) [Concomitant]
     Route: 065
  16. LEVAQUIN [Concomitant]
     Route: 065
  17. AMBIEN [Concomitant]
     Route: 065
  18. PREVACID [Concomitant]
     Route: 065
  19. PREDNISONE [Concomitant]
     Route: 065
  20. GLUCOTROL XL [Concomitant]
     Route: 065
  21. AVANDIA [Concomitant]
     Route: 065
  22. DARVOCET-N 100 [Concomitant]
     Route: 065
  23. PEPCID [Concomitant]
     Route: 065
  24. ECOTRIN [Concomitant]
     Route: 065
  25. DEMEROL [Concomitant]
     Route: 065
  26. ARTHROTEC [Concomitant]
     Route: 065
  27. REGLAN [Concomitant]
     Route: 065
  28. ANCEF [Concomitant]
     Route: 065
  29. HEPARIN SODIUM INJECTION (LILLY) [Concomitant]
     Route: 065
  30. MAALOX [Concomitant]
     Route: 065

REACTIONS (9)
  - ANXIETY [None]
  - DIABETES MELLITUS NON-INSULIN-DEPENDENT [None]
  - GASTRIC DISORDER [None]
  - KNEE ARTHROPLASTY [None]
  - OEDEMA PERIPHERAL [None]
  - POLYP [None]
  - PULMONARY EMBOLISM [None]
  - RECTAL HAEMORRHAGE [None]
  - THROMBOSIS [None]
